FAERS Safety Report 9861002 (Version 1)
Quarter: 2014Q1

REPORT INFORMATION
  Report Type: Spontaneous
  Country: US (occurrence: None)
  Receive Date: 20140131
  Receipt Date: 20140131
  Transmission Date: 20141002
  Serious: No
  Sender: FDA-Public Use
  Company Number: None

PATIENT
  Age: 37 Year
  Sex: Female
  Weight: 54.43 kg

DRUGS (2)
  1. PSEUDOPHEDRINE [Suspect]
     Indication: MULTIPLE ALLERGIES
     Dates: start: 20140117, end: 20140130
  2. PSEUDOPHEDRINE [Suspect]
     Indication: MULTIPLE CHEMICAL SENSITIVITY
     Dates: start: 20140117, end: 20140130

REACTIONS (2)
  - Product taste abnormal [None]
  - Product contamination microbial [None]
